FAERS Safety Report 9008683 (Version 3)
Quarter: 2013Q1

REPORT INFORMATION
  Report Type: Report from Study
  Country: US (occurrence: US)
  Receive Date: 20130111
  Receipt Date: 20130115
  Transmission Date: 20140127
  Serious: Yes (Death, Life-Threatening)
  Sender: FDA-Public Use
  Company Number: US-ROCHE-1178239

PATIENT
  Age: 81 Year
  Sex: Female
  Weight: 64.4 kg

DRUGS (8)
  1. BEVACIZUMAB [Suspect]
     Indication: HEAD AND NECK CANCER
     Dosage: LAST DOSE ON 14/DEC/2012
     Route: 042
     Dates: start: 20120917
  2. DOCETAXEL [Suspect]
     Indication: HEAD AND NECK CANCER
     Dosage: LAST DOSE ON 14/DEC/2012
     Route: 042
     Dates: start: 20120917
  3. CARBOPLATIN [Suspect]
     Indication: HEAD AND NECK CANCER
     Dosage: AUC 6, LAST DOSE ON 14/DEC/2012
     Route: 042
     Dates: start: 20120917
  4. LIDOCAINE [Concomitant]
  5. LEVOTHROID [Concomitant]
  6. PREDNISONE [Concomitant]
  7. GABAPENTIN [Concomitant]
  8. LORTAB [Concomitant]

REACTIONS (1)
  - Fall [Fatal]
